FAERS Safety Report 19483593 (Version 3)
Quarter: 2022Q1

REPORT INFORMATION
  Report Type: Spontaneous
  Country: JP (occurrence: JP)
  Receive Date: 20210701
  Receipt Date: 20220214
  Transmission Date: 20220423
  Serious: Yes (Other)
  Sender: FDA-Public Use
  Company Number: JP-FERRINGPH-2021FE04215

PATIENT
  Age: 82 Year
  Sex: Male

DRUGS (3)
  1. DEGARELIX [Suspect]
     Active Substance: DEGARELIX
     Indication: Prostate cancer
     Dosage: 240 MG, ONCE/SINGLE
     Route: 058
     Dates: start: 20200812, end: 20200812
  2. DEGARELIX [Suspect]
     Active Substance: DEGARELIX
     Dosage: 80 MG
     Route: 058
     Dates: end: 20210202
  3. APALUTAMIDE [Suspect]
     Active Substance: APALUTAMIDE
     Indication: Product used for unknown indication
     Dosage: 240 MG, DAILY
     Route: 048

REACTIONS (1)
  - Interstitial lung disease [Recovered/Resolved]

NARRATIVE: CASE EVENT DATE: 20201209
